FAERS Safety Report 17273246 (Version 8)
Quarter: 2022Q4

REPORT INFORMATION
  Report Type: Spontaneous
  Country: JP (occurrence: None)
  Receive Date: 20200115
  Receipt Date: 20221028
  Transmission Date: 20230112
  Serious: Yes (Hospitalization)
  Sender: FDA-Public Use
  Company Number: JP-EISAI MEDICAL RESEARCH-EC-2020-068229

PATIENT
  Sex: Female

DRUGS (2)
  1. ERIBULIN [Suspect]
     Active Substance: ERIBULIN
     Indication: Breast cancer metastatic
     Route: 041
     Dates: start: 20191126, end: 2019
  2. ERIBULIN [Suspect]
     Active Substance: ERIBULIN
     Route: 041
     Dates: start: 20191221, end: 20191221

REACTIONS (10)
  - Pseudocirrhosis [Unknown]
  - Leukopenia [Recovered/Resolved]
  - Hepatic function abnormal [Unknown]
  - Stomatitis [Unknown]
  - Rash [Unknown]
  - Pruritus [Unknown]
  - Hypoaesthesia [Unknown]
  - Decreased appetite [Unknown]
  - Dizziness [Unknown]
  - Glucose tolerance impaired [Unknown]

NARRATIVE: CASE EVENT DATE: 20190101
